FAERS Safety Report 4357179-X (Version None)
Quarter: 2004Q2

REPORT INFORMATION
  Report Type: 
  Country: None (occurrence: None)
  Receive Date: 20040511
  Receipt Date: 20040511
  Transmission Date: 20050107
  Serious: Yes (Hospitalization)
  Sender: FDA-Public Use
  Company Number: None

PATIENT
  Sex: Male
  Weight: 80.2 kg

DRUGS (2)
  1. CYTOXAN [Suspect]
     Indication: PROSTATE CANCER METASTATIC
     Dosage: 1500 MG DAILY PO
     Route: 048
     Dates: start: 20040113, end: 20040420
  2. COUMADIN [Concomitant]

REACTIONS (1)
  - LOCALISED INFECTION [None]
